FAERS Safety Report 9804306 (Version 2)
Quarter: 2014Q1

REPORT INFORMATION
  Report Type: Report from Study
  Country: ES (occurrence: ES)
  Receive Date: 20140108
  Receipt Date: 20140113
  Transmission Date: 20141002
  Serious: Yes (Hospitalization)
  Sender: FDA-Public Use
  Company Number: ES-BRISTOL-MYERS SQUIBB COMPANY-19971365

PATIENT
  Age: 61 Year
  Sex: Male
  Weight: 90.8 kg

DRUGS (2)
  1. NIVOLUMAB [Suspect]
     Indication: NEOPLASM
     Dosage: 1 DF :100 UNITS NOS.
     Route: 042
     Dates: start: 20131227
  2. IPILIMUMAB [Suspect]
     Indication: NEOPLASM
     Dosage: 1 DF : 90 UNITS NOS.
     Route: 042
     Dates: start: 20131227

REACTIONS (1)
  - Dyspnoea [Not Recovered/Not Resolved]
